FAERS Safety Report 15632258 (Version 1)
Quarter: 2018Q4

REPORT INFORMATION
  Report Type: Spontaneous
  Country: US (occurrence: US)
  Receive Date: 20181119
  Receipt Date: 20181119
  Transmission Date: 20190205
  Serious: Yes (Hospitalization, Other)
  Sender: FDA-Public Use
  Company Number: US-BAYER-2018-211767

PATIENT
  Weight: 1.7 kg

DRUGS (1)
  1. PARACETAMOL [Suspect]
     Active Substance: ACETAMINOPHEN
     Route: 064

REACTIONS (6)
  - Platelet count decreased [Recovering/Resolving]
  - Drug-induced liver injury [Recovering/Resolving]
  - Coagulopathy [Recovering/Resolving]
  - Foetal exposure during pregnancy [Recovering/Resolving]
  - Premature baby [None]
  - Analgesic drug level increased [Recovering/Resolving]
